FAERS Safety Report 23046015 (Version 2)
Quarter: 2023Q4

REPORT INFORMATION
  Report Type: Report from Study
  Country: GB (occurrence: GB)
  Receive Date: 20231009
  Receipt Date: 20231030
  Transmission Date: 20240109
  Serious: Yes (Hospitalization, Other)
  Sender: FDA-Public Use
  Company Number: GB-GALAPAGOS-GALAPAGOS-GB007959

PATIENT
  Age: 29 Year
  Sex: Male
  Weight: 91.4 kg

DRUGS (7)
  1. DOXYCYCLINE [Suspect]
     Active Substance: DOXYCYCLINE
     Indication: Sinusitis
     Dosage: 200 MILLIGRAM, DURATION: 1 DAYS
     Route: 048
     Dates: start: 20230914, end: 20230914
  2. DOXYCYCLINE [Suspect]
     Active Substance: DOXYCYCLINE
     Indication: Nasal polyps
  3. FILGOTINIB [Suspect]
     Active Substance: FILGOTINIB
     Indication: Colitis ulcerative
     Dosage: 200 MILLIGRAM DAILY; 200 MILLIGRAM, QD, DURATION: 12 DAYS
     Route: 048
     Dates: start: 20230908, end: 20230919
  4. BECLOMETHASONE [Concomitant]
     Active Substance: BECLOMETHASONE
     Indication: Asthma
     Dosage: 200 MICROGRAM
     Route: 055
     Dates: start: 1998
  5. FLUTICASONE FUROATE [Concomitant]
     Active Substance: FLUTICASONE FUROATE
     Indication: Sinusitis
     Dosage: 27.5 MCG/SPRAY X 2, QD;
     Route: 045
     Dates: start: 199607
  6. FLUTICASONE FUROATE [Concomitant]
     Active Substance: FLUTICASONE FUROATE
     Indication: Nasal polyps
  7. PENTASA [Concomitant]
     Active Substance: MESALAMINE
     Indication: Colitis ulcerative
     Dosage: 4 GRAM DAILY; 4 GRAM, QD
     Route: 048
     Dates: start: 20230418

REACTIONS (1)
  - Pancreatitis [Recovered/Resolved]

NARRATIVE: CASE EVENT DATE: 20230919
